FAERS Safety Report 21173565 (Version 5)
Quarter: 2022Q3

REPORT INFORMATION
  Report Type: Spontaneous
  Country: BR (occurrence: BR)
  Receive Date: 20220804
  Receipt Date: 20220908
  Transmission Date: 20221027
  Serious: Yes (Hospitalization, Other)
  Sender: FDA-Public Use
  Company Number: BR-NOVARTISPH-NVSC2022BR175988

PATIENT
  Age: 1 Year
  Sex: Male
  Weight: 9.3 kg

DRUGS (6)
  1. ZOLGENSMA [Suspect]
     Active Substance: ONASEMNOGENE ABEPARVOVEC-XIOI
     Indication: Spinal muscular atrophy
     Dosage: UNK (52, 3 ML), (49.5 ML), ONCE/SINGLE
     Route: 042
     Dates: start: 20220721
  2. PREDNISOLONE [Concomitant]
     Active Substance: PREDNISOLONE
     Indication: Platelet count normal
     Dosage: 1 MG/KG/DAY (REDUCE SIDE EFFECT OG GENE THERAPY, ROUTE GASTROSTOMY)
     Route: 065
     Dates: start: 20220720, end: 20220726
  3. PREDNISOLONE [Concomitant]
     Active Substance: PREDNISOLONE
     Dosage: 2 MG/KG/DAY(INCREASED DOSE DUE TO THROMBOCYTOPENIA, ROUTE GASTROSTOMY)
     Route: 065
     Dates: start: 20220727, end: 20220804
  4. PREDNISOLONE [Concomitant]
     Active Substance: PREDNISOLONE
     Dosage: 1 MG, QD (NORMALIZATION OF PLATELETS, ROUTE GASTROSTOMY)
     Route: 065
     Dates: start: 20220805, end: 20220815
  5. PREDNISOLONE [Concomitant]
     Active Substance: PREDNISOLONE
     Dosage: 0.8 MG/KG, QD (ROUTE, GASTROSTOMY)
     Route: 065
     Dates: start: 20220816, end: 20220827
  6. PREDNISOLONE [Concomitant]
     Active Substance: PREDNISOLONE
     Dosage: 0.6 MG/KG, QD (ROUTE, GASTROSTOMY)
     Route: 065
     Dates: start: 20220828

REACTIONS (8)
  - Thrombotic microangiopathy [Recovered/Resolved]
  - Thrombocytopenia [Recovered/Resolved]
  - Anaemia [Recovered/Resolved]
  - Gingival bleeding [Recovered/Resolved]
  - Blood urea increased [Recovered/Resolved]
  - Hypertension [Recovered/Resolved]
  - Blood lactate dehydrogenase increased [Not Recovered/Not Resolved]
  - Platelet count decreased [Recovered/Resolved]

NARRATIVE: CASE EVENT DATE: 20220728
